FAERS Safety Report 5353554-5 (Version None)
Quarter: 2007Q2

REPORT INFORMATION
  Report Type: 
  Country: None (occurrence: None)
  Receive Date: 20070608
  Receipt Date: 20070608
  Transmission Date: 20071010
  Serious: Yes (Hospitalization)
  Sender: FDA-Public Use
  Company Number: None

PATIENT
  Sex: Male
  Weight: 111.1313 kg

DRUGS (1)
  1. CRESTOR [Suspect]
     Indication: CORONARY ARTERY DISEASE
     Dosage: 10MG 1 PO QD PO
     Route: 048

REACTIONS (5)
  - ABASIA [None]
  - HYPERHIDROSIS [None]
  - MUSCLE SPASMS [None]
  - NECK PAIN [None]
  - PARAESTHESIA [None]
